FAERS Safety Report 5191456-8 (Version None)
Quarter: 2006Q4

REPORT INFORMATION
  Report Type: 
  Country: None (occurrence: None)
  Receive Date: 20061219
  Receipt Date: 20061208
  Transmission Date: 20070319
  Serious: Yes (Other)
  Sender: FDA-Public Use
  Company Number: 2006151030

PATIENT
  Age: 48 Year
  Sex: Female
  Weight: 99.7913 kg

DRUGS (1)
  1. BENADRYL [Suspect]
     Indication: SEASONAL ALLERGY
     Dosage: 1 STRIP ONCE, ORAL
     Route: 048
     Dates: start: 20061101, end: 20061101

REACTIONS (3)
  - DRUG HYPERSENSITIVITY [None]
  - DYSPHAGIA [None]
  - SWOLLEN TONGUE [None]
